FAERS Safety Report 11969527 (Version 1)
Quarter: 2016Q1

REPORT INFORMATION
  Report Type: Spontaneous
  Country: US (occurrence: US)
  Receive Date: 20160128
  Receipt Date: 20160128
  Transmission Date: 20160526
  Serious: Yes (Other)
  Sender: FDA-Public Use
  Company Number: US-ACTAVIS-2016-01586

PATIENT
  Age: 14 Year
  Sex: Male

DRUGS (1)
  1. CARBAMAZEPINE (AELLC) [Suspect]
     Active Substance: CARBAMAZEPINE
     Indication: DYSKINESIA
     Dosage: 200 MG, BID
     Route: 065

REACTIONS (1)
  - Drug reaction with eosinophilia and systemic symptoms [Unknown]
